FAERS Safety Report 5647369-8 (Version None)
Quarter: 2008Q1

REPORT INFORMATION
  Report Type: 
  Country: None (occurrence: None)
  Receive Date: 20080131
  Receipt Date: 20071105
  Transmission Date: 20080703
  Serious: No
  Sender: FDA-Public Use
  Company Number: 163-21880-07101117

PATIENT
  Age: 76 Year
  Sex: Female

DRUGS (10)
  1. REVLIMID [Suspect]
     Indication: MULTIPLE MYELOMA
     Dosage: 25 MG, 1 IN 1 D, ORAL
     Route: 048
     Dates: start: 20070925, end: 20071003
  2. DEXAMETHASONE TAB [Concomitant]
  3. PAMIDRONATE DISODIUM [Concomitant]
  4. LEVOTHROID [Concomitant]
  5. OMEPRAZOLE [Concomitant]
  6. TIMOLOL (TIMOLOL) (EYE DROPS) [Concomitant]
  7. ADVAIR DISKUS 100/50 [Concomitant]
  8. NASAREL (FLUNISOLIDE) [Concomitant]
  9. COZAAR [Concomitant]
  10. HYDROCHLOROTHIAZIDE [Concomitant]

REACTIONS (3)
  - HYPOAESTHESIA [None]
  - NEUROPATHY PERIPHERAL [None]
  - PRURITUS [None]
